FAERS Safety Report 17642006 (Version 3)
Quarter: 2024Q4

REPORT INFORMATION
  Report Type: Spontaneous
  Country: IT (occurrence: IT)
  Receive Date: 20200407
  Receipt Date: 20241122
  Transmission Date: 20250114
  Serious: Yes (Death, Other)
  Sender: AUROBINDO
  Company Number: IT-ASPEN-GLO2020IT003377

PATIENT
  Age: 28 Year
  Sex: Female

DRUGS (12)
  1. DOXORUBICIN [Suspect]
     Active Substance: DOXORUBICIN
     Indication: Neuroblastoma
     Dosage: 60 MILLIGRAM/SQ. METER, ONCE A DAY, ON DAY 5
     Route: 065
  2. DOXORUBICIN [Suspect]
     Active Substance: DOXORUBICIN
     Dosage: 20 MG/M2, D1-3, FOR 3 CYCLES
     Route: 065
  3. MELPHALAN [Suspect]
     Active Substance: MELPHALAN
     Indication: Neuroblastoma
     Dosage: UNK
     Route: 065
  4. CISPLATIN [Suspect]
     Active Substance: CISPLATIN
     Indication: Neuroblastoma
     Dosage: 40 MILLIGRAM/SQ. METER, ONCE A DAY ON DAYS 1-5
     Route: 065
  5. CISPLATIN [Suspect]
     Active Substance: CISPLATIN
     Dosage: 30 MG/M2, FOR 3 CYCLES
     Route: 065
  6. CYCLOPHOSPHAMIDE [Suspect]
     Active Substance: CYCLOPHOSPHAMIDE
     Indication: Neuroblastoma
     Dosage: 300 MILLIGRAM/SQ. METER, ONCE A DAY, ON DAYS 1-5
     Route: 065
  7. TENIPOSIDE [Suspect]
     Active Substance: TENIPOSIDE
     Indication: Neuroblastoma
     Dosage: UNK
     Route: 065
  8. ETOPOSIDE [Suspect]
     Active Substance: ETOPOSIDE
     Indication: Neuroblastoma
     Dosage: 100 MILLIGRAM/SQ. METER, ONCE A DAY ON DAYS 1-5
     Route: 065
  9. CARMUSTINE [Suspect]
     Active Substance: CARMUSTINE
     Indication: Neuroblastoma
     Dosage: UNK
     Route: 065
  10. VINCRISTINE [Suspect]
     Active Substance: VINCRISTINE
     Indication: Neuroblastoma
     Dosage: 1.5 MILLIGRAM/SQ. METER, ONCE A DAY, ON DAYS 1 AND 5
     Route: 065
  11. GRANULOCYTE COLONY-STIMULATING FACTOR NOS [Suspect]
     Active Substance: GRANULOCYTE COLONY-STIMULATING FACTOR NOS
     Indication: Neuroblastoma
     Dosage: FOR 3 CYCLES
     Route: 065
  12. SUNITINIB [Suspect]
     Active Substance: SUNITINIB
     Indication: Product used for unknown indication
     Dosage: 37.5 MILLIGRAM, DAILY, WITHDRAWN AFTER 1 MONTH
     Route: 065

REACTIONS (1)
  - Metastasis [Fatal]
